FAERS Safety Report 9556075 (Version 1)
Quarter: 2013Q3

REPORT INFORMATION
  Report Type: Spontaneous
  Country: JP (occurrence: JP)
  Receive Date: 20130926
  Receipt Date: 20130926
  Transmission Date: 20140515
  Serious: Yes (Other)
  Sender: FDA-Public Use
  Company Number: JP-MYLANLABS-2013S1020906

PATIENT
  Sex: Female
  Weight: 1.94 kg

DRUGS (3)
  1. ATROPINE [Suspect]
     Indication: ANAESTHESIA
     Dosage: 0.02MG
     Route: 042
  2. FENTANYL [Suspect]
     Indication: ANAESTHESIA
     Dosage: 6 MICROG
     Route: 042
  3. ROCURONIUM BROMIDE [Suspect]
     Indication: ANAESTHESIA
     Dosage: 2MG
     Route: 042

REACTIONS (1)
  - Neonatal respiratory distress syndrome [Recovering/Resolving]
